FAERS Safety Report 23240609 (Version 2)
Quarter: 2023Q4

REPORT INFORMATION
  Report Type: Spontaneous
  Country: JP (occurrence: JP)
  Receive Date: 20231129
  Receipt Date: 20231208
  Transmission Date: 20240110
  Serious: Yes (Hospitalization)
  Sender: FDA-Public Use
  Company Number: JP-BEH-2023165670

PATIENT
  Sex: Male

DRUGS (2)
  1. HIZENTRA [Suspect]
     Active Substance: HUMAN IMMUNOGLOBULIN G
     Indication: Immunoglobulin therapy
     Dosage: 14 GRAM, QW
     Route: 058
     Dates: start: 201912, end: 202102
  2. HIZENTRA [Suspect]
     Active Substance: HUMAN IMMUNOGLOBULIN G
     Indication: Hypogammaglobulinaemia
     Dosage: 20 GRAM, QW
     Route: 058
     Dates: start: 202102

REACTIONS (5)
  - Pneumonia haemophilus [Recovered/Resolved]
  - Pneumonia haemophilus [Recovered/Resolved]
  - Pneumonia haemophilus [Recovered/Resolved]
  - Pneumonia haemophilus [Recovered/Resolved]
  - Pneumonia haemophilus [Recovered/Resolved]

NARRATIVE: CASE EVENT DATE: 20200501
